FAERS Safety Report 12503198 (Version 3)
Quarter: 2016Q4

REPORT INFORMATION
  Report Type: Spontaneous
  Country: JP (occurrence: JP)
  Receive Date: 20160628
  Receipt Date: 20161223
  Transmission Date: 20170207
  Serious: Yes (Death, Hospitalization)
  Sender: FDA-Public Use
  Company Number: PHJP2016JP017722

PATIENT
  Age: 79 Year
  Sex: Male

DRUGS (5)
  1. EXJADE [Suspect]
     Active Substance: DEFERASIROX
     Dosage: 1125 MG, UNK
     Route: 048
     Dates: start: 201603, end: 20160527
  2. EXJADE [Suspect]
     Active Substance: DEFERASIROX
     Dosage: 1000 MG, UNK
     Route: 048
     Dates: start: 201601, end: 201603
  3. EXJADE [Suspect]
     Active Substance: DEFERASIROX
     Indication: ACUTE MYELOID LEUKAEMIA
     Dosage: 250 MG, UNK
     Route: 048
     Dates: start: 201503, end: 201511
  4. EXJADE [Suspect]
     Active Substance: DEFERASIROX
     Dosage: 500 MG, UNK
     Route: 048
     Dates: start: 201511, end: 201601
  5. CYTARABINE. [Concomitant]
     Active Substance: CYTARABINE
     Indication: ACUTE MYELOID LEUKAEMIA
     Dosage: UNK
     Route: 065
     Dates: start: 201406

REACTIONS (7)
  - Acute myeloid leukaemia recurrent [Fatal]
  - Serum ferritin increased [Recovering/Resolving]
  - Pneumonia [Fatal]
  - Platelet count decreased [Fatal]
  - Condition aggravated [Fatal]
  - Pyrexia [Fatal]
  - White blood cell count decreased [Fatal]

NARRATIVE: CASE EVENT DATE: 201603
